FAERS Safety Report 13497247 (Version 4)
Quarter: 2018Q1

REPORT INFORMATION
  Report Type: Spontaneous
  Country: FR (occurrence: FR)
  Receive Date: 20170428
  Receipt Date: 20180220
  Transmission Date: 20180508
  Serious: Yes (Death, Life-Threatening, Hospitalization)
  Sender: FDA-Public Use
  Company Number: FR-CELGENEUS-FRA-20170409640

PATIENT
  Age: 55 Year
  Sex: Male
  Weight: 95 kg

DRUGS (16)
  1. ZITHROMAX [Concomitant]
     Active Substance: AZITHROMYCIN DIHYDRATE
     Indication: BRONCHITIS
     Route: 065
  2. LOVENOX [Concomitant]
     Active Substance: ENOXAPARIN SODIUM
     Indication: PROPHYLAXIS
     Route: 065
  3. DARATUMUMAB [Concomitant]
     Active Substance: DARATUMUMAB
     Indication: PLASMA CELL MYELOMA
     Dosage: 2.2857 MILLIGRAM/KILOGRAM
     Route: 065
     Dates: start: 20170504
  4. ACETYLSALICYLATE LYSINE [Concomitant]
     Active Substance: ASPIRIN DL-LYSINE
     Indication: PROPHYLAXIS
     Route: 065
  5. AUGMENTIN [Concomitant]
     Active Substance: AMOXICILLIN\CLAVULANATE POTASSIUM
     Indication: CATARRH
     Route: 065
  6. ULTRA-LEVURE [Concomitant]
     Active Substance: SACCHAROMYCES CEREVISIAE
     Indication: RHINORRHOEA
     Route: 065
  7. VALACICLOVIR HYDROCHLORIDE [Concomitant]
     Active Substance: VALACYCLOVIR HYDROCHLORIDE
     Indication: PROPHYLAXIS
     Route: 065
  8. BACTRIM [Concomitant]
     Active Substance: SULFAMETHOXAZOLE\TRIMETHOPRIM
     Indication: PROPHYLAXIS
     Route: 065
  9. DOLIPRANE [Concomitant]
     Active Substance: ACETAMINOPHEN
     Indication: RHINORRHOEA
     Route: 065
  10. MOPRAL [Concomitant]
     Active Substance: OMEPRAZOLE
     Indication: DYSPEPSIA
     Route: 065
  11. KETOPROFEN. [Concomitant]
     Active Substance: KETOPROFEN
     Indication: RHINORRHOEA
     Route: 065
  12. CONTRAMAL [Concomitant]
     Active Substance: TRAMADOL HYDROCHLORIDE
     Indication: NEURALGIA
     Route: 065
  13. MONTELUKAST [Concomitant]
     Active Substance: MONTELUKAST SODIUM
     Indication: SPINAL CORD COMPRESSION
     Route: 065
  14. REVLIMID [Suspect]
     Active Substance: LENALIDOMIDE
     Indication: PLASMA CELL MYELOMA
     Dosage: 25 MILLIGRAM
     Route: 048
     Dates: start: 20150126, end: 20170413
  15. DEXAMETHASONE. [Suspect]
     Active Substance: DEXAMETHASONE
     Indication: PLASMA CELL MYELOMA
     Dosage: 2.8571 MILLIGRAM
     Route: 048
     Dates: start: 20150126, end: 20170412
  16. ESOMEPRAZOLE [Concomitant]
     Active Substance: ESOMEPRAZOLE
     Indication: PROPHYLAXIS
     Route: 065

REACTIONS (1)
  - Spinal cord compression [Fatal]

NARRATIVE: CASE EVENT DATE: 20170413
